FAERS Safety Report 14230463 (Version 1)
Quarter: 2017Q4

REPORT INFORMATION
  Report Type: Spontaneous
  Country: US (occurrence: US)
  Receive Date: 20171128
  Receipt Date: 20171128
  Transmission Date: 20180321
  Serious: Yes (Death, Other)
  Sender: FDA-Public Use
  Company Number: US-AUROBINDO-AUR-APL-2017-43673

PATIENT
  Age: 55 Year
  Sex: Female

DRUGS (7)
  1. METRONIDAZOLE. [Suspect]
     Active Substance: METRONIDAZOLE
     Indication: INFECTION
  2. MEROPENEM. [Suspect]
     Active Substance: MEROPENEM
     Indication: PRODUCT USED FOR UNKNOWN INDICATION
     Route: 065
  3. HYDROCORTISONE. [Suspect]
     Active Substance: HYDROCORTISONE
     Indication: ADRENOCORTICAL STEROID THERAPY
     Dosage: 50MG QID
     Route: 065
  4. HYDROCORTISONE. [Suspect]
     Active Substance: HYDROCORTISONE
     Dosage: 50 MG TID
     Route: 065
  5. CIPROFLOXACIN. [Suspect]
     Active Substance: CIPROFLOXACIN
     Indication: MENINGITIS
     Route: 065
  6. CEFUROXIME. [Suspect]
     Active Substance: CEFUROXIME
     Indication: INFECTION
     Route: 065
  7. HYDROCORTISONE. [Suspect]
     Active Substance: HYDROCORTISONE
     Dosage: 50MG BID
     Route: 065

REACTIONS (14)
  - Infective aneurysm [Fatal]
  - Intraventricular haemorrhage [Fatal]
  - Mental status changes [Fatal]
  - Headache [Fatal]
  - Meningitis candida [Fatal]
  - Basilar artery stenosis [Fatal]
  - Brain stem infarction [Fatal]
  - Cerebellar infarction [Fatal]
  - Thalamic infarction [Fatal]
  - Candida infection [Fatal]
  - Cerebrospinal fluid leakage [Fatal]
  - Hydrocephalus [Fatal]
  - Basilar artery aneurysm [Fatal]
  - Vasculitis [Fatal]
